FAERS Safety Report 4533175-4 (Version None)
Quarter: 2005Q1

REPORT INFORMATION
  Report Type: 
  Country: None (occurrence: None)
  Receive Date: 20041206
  Receipt Date: 20041101
  Transmission Date: 20050727
  Serious: No
  Sender: FDA-Public Use
  Company Number: USA041082102

PATIENT
  Age: 52 Year
  Sex: Female
  Weight: 63 kg

DRUGS (3)
  1. CYMBALTA [Suspect]
     Indication: DEPRESSION
     Dosage: 60 MG DAY
     Dates: start: 20041023
  2. SERZONE [Concomitant]
  3. ALTACE (RAMIPRIL) [Concomitant]

REACTIONS (9)
  - APATHY [None]
  - BLOOD PRESSURE FLUCTUATION [None]
  - DEPRESSION [None]
  - DIZZINESS [None]
  - HEART RATE INCREASED [None]
  - IRRITABILITY [None]
  - SOMNOLENCE [None]
  - TENSION [None]
  - TREMOR [None]
